FAERS Safety Report 7007216-9 (Version None)
Quarter: 2010Q3

REPORT INFORMATION
  Report Type: 
  Country: None (occurrence: None)
  Receive Date: 20100914
  Receipt Date: 20100901
  Transmission Date: 20110219
  Serious: Yes (Death, Congenital Anomaly)
  Sender: FDA-Public Use
  Company Number: WAES 1007USA01498B1

PATIENT
  Sex: Male
  Weight: 0.827 kg

DRUGS (7)
  1. ISENTRESS [Suspect]
     Indication: ACQUIRED IMMUNODEFICIENCY SYNDROME
     Dosage: 800
     Dates: end: 20100323
  2. COMBIVIR [Concomitant]
  3. EMTRIVA [Concomitant]
  4. KALETRA [Concomitant]
  5. NORVIR [Concomitant]
  6. PREZISTA [Concomitant]
  7. VIREAD [Concomitant]

REACTIONS (4)
  - CONGENITAL ANOMALY [None]
  - FOETAL DISTRESS SYNDROME [None]
  - MATERNAL DRUGS AFFECTING FOETUS [None]
  - STILLBIRTH [None]
